FAERS Safety Report 14882516 (Version 1)
Quarter: 2018Q2

REPORT INFORMATION
  Report Type: Spontaneous
  Country: RU (occurrence: RU)
  Receive Date: 20180511
  Receipt Date: 20180511
  Transmission Date: 20180711
  Serious: Yes (Other)
  Sender: FDA-Public Use
  Company Number: RU-ASTRAZENECA-2018SE25594

PATIENT
  Age: 66 Year
  Sex: Male
  Weight: 83 kg

DRUGS (11)
  1. CARVEDILOL. [Concomitant]
     Active Substance: CARVEDILOL
     Dosage: 325 MG
  2. CARVEDILOL. [Concomitant]
     Active Substance: CARVEDILOL
     Dosage: REDUCED DOSE
  3. OMEZ [Suspect]
     Active Substance: OMEPRAZOLE
     Route: 048
  4. BRILINTA [Suspect]
     Active Substance: TICAGRELOR
     Indication: ANGINA UNSTABLE
     Route: 048
     Dates: start: 20180116
  5. URSOSAN [Concomitant]
     Active Substance: URSODIOL
  6. ROSUVASTATIN. [Suspect]
     Active Substance: ROSUVASTATIN
     Dosage: 10 MG
     Route: 048
  7. ROSUVASTATIN. [Suspect]
     Active Substance: ROSUVASTATIN
     Dosage: 40 MG
     Route: 048
  8. CARVEDILOL. [Concomitant]
     Active Substance: CARVEDILOL
     Dosage: REDUCED DOSE
  9. SIOFOR [Concomitant]
     Active Substance: METFORMIN HYDROCHLORIDE
     Dosage: 500 MG
  10. PERINDOPRIL [Suspect]
     Active Substance: PERINDOPRIL
     Route: 065
     Dates: start: 20180116
  11. CARDIOMAGNYL [Concomitant]
     Active Substance: ASPIRIN\MAGNESIUM HYDROXIDE
     Dosage: 75-100 MG

REACTIONS (5)
  - Syncope [Recovered/Resolved]
  - Blood pressure decreased [Not Recovered/Not Resolved]
  - Nausea [Recovered/Resolved]
  - Frequent bowel movements [Not Recovered/Not Resolved]
  - Traumatic haemorrhage [Recovered/Resolved]

NARRATIVE: CASE EVENT DATE: 201801
